FAERS Safety Report 4345471-4 (Version None)
Quarter: 2004Q1

REPORT INFORMATION
  Report Type: 
  Country: None (occurrence: None)
  Receive Date: 20040319
  Receipt Date: 20040204
  Transmission Date: 20041129
  Serious: No
  Sender: FDA-Public Use
  Company Number: US-JNJFOC-20040201660

PATIENT
  Sex: Female

DRUGS (3)
  1. ORTHO EVRA [Suspect]
     Indication: CONTRACEPTION
     Dosage: 1 DOSE(S), 3 IN 4 WEEK, TRANSDERMAL
     Route: 062
  2. CHASTE TREE HERB (ALL OTHER THERAPEUTIC PRODUCTS) [Concomitant]
  3. EVENING PRIMROSE OIL (EVENING PRIMROSE OIL) [Concomitant]

REACTIONS (1)
  - MOOD SWINGS [None]
